FAERS Safety Report 4295748-6 (Version None)
Quarter: 2004Q1

REPORT INFORMATION
  Report Type: 
  Country: None (occurrence: None)
  Receive Date: 20040216
  Receipt Date: 20031024
  Transmission Date: 20041129
  Serious: No
  Sender: FDA-Public Use
  Company Number: US-GLAXOSMITHKLINE-A0431555A

PATIENT
  Age: 18 Year
  Sex: Female

DRUGS (6)
  1. LAMICTAL [Suspect]
     Indication: BIPOLAR DISORDER
     Dosage: 50MG TWICE PER DAY
     Route: 048
     Dates: start: 20030801, end: 20030901
  2. EFFEXOR XR [Concomitant]
  3. WELLBUTRIN SR [Concomitant]
  4. NEURONTIN [Concomitant]
  5. TOPAMAX [Concomitant]
  6. ADDERALL 10 [Concomitant]

REACTIONS (1)
  - RASH [None]
